FAERS Safety Report 13874093 (Version 1)
Quarter: 2017Q3

REPORT INFORMATION
  Report Type: Spontaneous
  Country: CA (occurrence: CA)
  Receive Date: 20170816
  Receipt Date: 20170816
  Transmission Date: 20171127
  Serious: Yes (Hospitalization)
  Sender: FDA-Public Use
  Company Number: CA-MYLANLABS-2017M1050002

PATIENT

DRUGS (1)
  1. AZELASTINE/FLUTICASONE [Suspect]
     Active Substance: AZELASTINE HYDROCHLORIDE\FLUTICASONE PROPIONATE
     Indication: PRODUCT USED FOR UNKNOWN INDICATION
     Route: 045

REACTIONS (6)
  - Hypersensitivity [Recovered/Resolved]
  - Chest pain [Recovered/Resolved]
  - Throat irritation [Recovered/Resolved]
  - Chest discomfort [Recovered/Resolved]
  - Cough [Recovered/Resolved]
  - Urticaria [Recovered/Resolved]
